FAERS Safety Report 15600237 (Version 1)
Quarter: 2018Q4

REPORT INFORMATION
  Report Type: Spontaneous
  Country: US (occurrence: US)
  Receive Date: 20181109
  Receipt Date: 20181109
  Transmission Date: 20190205
  Serious: No
  Sender: FDA-Public Use
  Company Number: US-HETERO CORPORATE-HET2018US01163

PATIENT
  Sex: Male
  Weight: 78 kg

DRUGS (1)
  1. IRBESARTAN. [Suspect]
     Active Substance: IRBESARTAN
     Indication: HYPERTENSION
     Dosage: 300 MG, QD
     Route: 065
     Dates: end: 20181027

REACTIONS (2)
  - Product taste abnormal [Unknown]
  - Dysgeusia [Unknown]
